FAERS Safety Report 8681540 (Version 3)
Quarter: 2012Q4

REPORT INFORMATION
  Report Type: Spontaneous
  Country: US (occurrence: US)
  Receive Date: 20120725
  Receipt Date: 20121218
  Transmission Date: 20130627
  Serious: Yes (Death, Hospitalization, Other)
  Sender: FDA-Public Use
  Company Number: PHEH2012US014481

PATIENT
  Age: 56 Year
  Sex: Male
  Weight: 69.9 kg

DRUGS (1)
  1. ZOMETA [Suspect]
     Dosage: 4 mg, monthly
     Route: 042
     Dates: end: 20120328

REACTIONS (11)
  - Lung cancer metastatic [Fatal]
  - Metastases to bone [Fatal]
  - Metastases to central nervous system [Fatal]
  - Brain oedema [Fatal]
  - General physical health deterioration [Fatal]
  - Asthenia [Unknown]
  - Osteonecrosis of jaw [Recovering/Resolving]
  - Swelling [Unknown]
  - Erythema [Unknown]
  - Aphagia [Unknown]
  - Pain [Unknown]
